FAERS Safety Report 21489107 (Version 1)
Quarter: 2022Q4

REPORT INFORMATION
  Report Type: Spontaneous
  Country: JP (occurrence: JP)
  Receive Date: 20221021
  Receipt Date: 20221021
  Transmission Date: 20230113
  Serious: Yes (Hospitalization, Other)
  Sender: FDA-Public Use
  Company Number: JP-ONO-2022JP028457

PATIENT
  Age: 76 Year
  Sex: Male

DRUGS (3)
  1. OPDIVO [Suspect]
     Active Substance: NIVOLUMAB
     Indication: Gastric cancer
     Dosage: 360 MG, Q3W
     Route: 041
     Dates: start: 20220803, end: 20220915
  2. TS-1 [Concomitant]
     Active Substance: GIMERACIL\OTERACIL\TEGAFUR
     Indication: Gastric cancer
     Dosage: UNK (14 DAYS ADMINISTRATION IN 1 COURSE)
     Route: 048
     Dates: start: 20220803, end: 20220915
  3. OXALIPLATIN [Concomitant]
     Active Substance: OXALIPLATIN
     Indication: Gastric cancer
     Dosage: UNK UNK, Q3W
     Route: 042
     Dates: start: 20220803, end: 20220915

REACTIONS (2)
  - Appendicitis [Recovered/Resolved]
  - Off label use [Unknown]

NARRATIVE: CASE EVENT DATE: 20220922
